FAERS Safety Report 14932875 (Version 1)
Quarter: 2018Q2

REPORT INFORMATION
  Report Type: Spontaneous
  Country: US (occurrence: US)
  Receive Date: 20180504
  Receipt Date: 20180504
  Transmission Date: 20180711
  Serious: No
  Sender: FDA-Public Use
  Company Number: None

PATIENT
  Age: 60 Year
  Sex: Female
  Weight: 72.57 kg

DRUGS (7)
  1. VITAMIN D [Concomitant]
     Active Substance: CHOLECALCIFEROL
  2. ZOMETA [Suspect]
     Active Substance: ZOLEDRONIC ACID
     Indication: BREAST CANCER
     Dates: start: 20170612, end: 20180412
  3. ASPIRIN. [Concomitant]
     Active Substance: ASPIRIN
  4. ANASTROZOLE. [Concomitant]
     Active Substance: ANASTROZOLE
  5. ASA [Concomitant]
     Active Substance: ASPIRIN
  6. ZOMETA [Suspect]
     Active Substance: ZOLEDRONIC ACID
     Indication: OSTEOPENIA
     Dates: start: 20170612, end: 20180412
  7. ZOMETA [Suspect]
     Active Substance: ZOLEDRONIC ACID
     Indication: OSTEORADIONECROSIS
     Dates: start: 20170612, end: 20180412

REACTIONS (4)
  - Infusion related reaction [None]
  - Papule [None]
  - Nail disorder [None]
  - Rash [None]

NARRATIVE: CASE EVENT DATE: 20180412
